FAERS Safety Report 9325536 (Version 1)
Quarter: 2013Q2

REPORT INFORMATION
  Report Type: Spontaneous
  Country: US (occurrence: None)
  Receive Date: 20130531
  Receipt Date: 20130531
  Transmission Date: 20140414
  Serious: Yes (Hospitalization)
  Sender: FDA-Public Use
  Company Number: None

PATIENT
  Age: 49 Year
  Sex: Female

DRUGS (2)
  1. VICTRELIS [Suspect]
     Indication: HEPATITIS C
     Dosage: 800MG  3 TIMES DAILY  BY MOUTH
     Route: 048
     Dates: start: 20130402, end: 201305
  2. RIBAVIRIN [Suspect]
     Indication: HEPATITIS C
     Dosage: 600MG  2 TIMES DAILY  BY MOUTH
     Route: 048
     Dates: start: 20130308, end: 201305

REACTIONS (1)
  - Febrile neutropenia [None]
